FAERS Safety Report 8060954-1 (Version None)
Quarter: 2012Q1

REPORT INFORMATION
  Report Type: 
  Country: None (occurrence: None)
  Receive Date: 20120120
  Receipt Date: 20120113
  Transmission Date: 20120608
  Serious: Yes (Other)
  Sender: FDA-Public Use
  Company Number: PHHY2012FR004296

PATIENT
  Age: 35 Year
  Sex: Female

DRUGS (1)
  1. BROMOCRIPTINE MESYLATE [Suspect]

REACTIONS (3)
  - IMPRISONMENT [None]
  - AGGRESSION [None]
  - INTENTIONAL DRUG MISUSE [None]
